FAERS Safety Report 9710739 (Version 1)
Quarter: 2013Q4

REPORT INFORMATION
  Report Type: Spontaneous
  Country: CN (occurrence: CN)
  Receive Date: 20131126
  Receipt Date: 20131126
  Transmission Date: 20140711
  Serious: Yes (Hospitalization)
  Sender: FDA-Public Use
  Company Number: CN-JNJFOC-20131111098

PATIENT
  Age: 28 Year
  Sex: Female

DRUGS (4)
  1. RISPERDAL [Suspect]
     Indication: MENTAL DISORDER
     Route: 048
     Dates: start: 2011
  2. RISPERDAL [Suspect]
     Indication: MENTAL DISORDER
     Route: 048
     Dates: start: 2011
  3. RISPERDAL [Suspect]
     Indication: MENTAL DISORDER
     Dosage: 5-6 MG (1 MG X 20 TABLETS)
     Route: 048
     Dates: start: 2009
  4. CLOZAPINE [Concomitant]
     Route: 065

REACTIONS (3)
  - Suicide attempt [Recovered/Resolved]
  - Wound [Recovered/Resolved]
  - Urinary incontinence [Not Recovered/Not Resolved]
